FAERS Safety Report 5877364-5 (Version None)
Quarter: 2008Q3

REPORT INFORMATION
  Report Type: 
  Country: None (occurrence: None)
  Receive Date: 20080908
  Receipt Date: 20080811
  Transmission Date: 20090109
  Serious: Yes (Hospitalization)
  Sender: FDA-Public Use
  Company Number: 2008BI013093

PATIENT
  Age: 50 Year
  Sex: Female
  Weight: 60 kg

DRUGS (6)
  1. TYSABRI [Suspect]
     Indication: RELAPSING-REMITTING MULTIPLE SCLEROSIS
     Dosage: 300 MG; QM; IV
     Route: 042
     Dates: start: 20080513, end: 20080513
  2. CORTICOID [Concomitant]
  3. IMMUNOGLOBULINS [Concomitant]
  4. VINCRISTINE [Concomitant]
  5. REBIF [Concomitant]
  6. COPAXONE [Concomitant]

REACTIONS (3)
  - HAEMOLYTIC ANAEMIA [None]
  - NYSTAGMUS [None]
  - TINNITUS [None]
